FAERS Safety Report 10569366 (Version 2)
Quarter: 2014Q4

REPORT INFORMATION
  Report Type: Spontaneous
  Country: HU (occurrence: HU)
  Receive Date: 20141106
  Receipt Date: 20141121
  Transmission Date: 20150529
  Serious: Yes (Hospitalization)
  Sender: FDA-Public Use
  Company Number: PHHY2014HU142502

PATIENT
  Age: 42 Year
  Sex: Male

DRUGS (8)
  1. LEUCOVORIN-TEVA [Suspect]
     Active Substance: LEUCOVORIN
     Indication: RECTAL CANCER METASTATIC
     Dates: start: 20141009, end: 20141019
  2. CLEXANE [Suspect]
     Active Substance: ENOXAPARIN SODIUM
     Indication: PRODUCT USED FOR UNKNOWN INDICATION
     Dosage: 0.4 ML, ONCE/SINGLE
     Dates: start: 20141009, end: 20141009
  3. 5-FLUOROURACIL [Suspect]
     Active Substance: FLUOROURACIL
     Indication: RECTAL CANCER METASTATIC
     Route: 041
     Dates: start: 20141009, end: 20141010
  4. APRANAX [Suspect]
     Active Substance: NAPROXEN
     Indication: PRODUCT USED FOR UNKNOWN INDICATION
     Dosage: 550 MG, ONCE/SINGLE
     Route: 048
     Dates: start: 20141009, end: 20141009
  5. OXALIPLATIN TEVA [Suspect]
     Active Substance: OXALIPLATIN
     Indication: RECTAL CANCER METASTATIC
     Dosage: DILUTED IN 500 ML GLUCOSE SOLUTION
     Route: 042
     Dates: start: 20141009, end: 20141009
  6. VECTIBIX [Suspect]
     Active Substance: PANITUMUMAB
     Indication: RECTAL CANCER METASTATIC
     Dosage: A TOTAL DOSE OF 396 MG DILUTED IN 100 ML SALINE
     Route: 042
     Dates: start: 20141009, end: 20141009
  7. 5-FLUOROURACIL [Suspect]
     Active Substance: FLUOROURACIL
     Dosage: DILUTED IN 20 ML SALINE
     Route: 040
     Dates: start: 20141009, end: 20141009
  8. VECTIBIX [Suspect]
     Active Substance: PANITUMUMAB
     Dosage: A TOTAL DOSE OF 396 MG DILUTED IN 100 ML SALINE
     Route: 042
     Dates: start: 20141009, end: 20141009

REACTIONS (1)
  - Thrombocytopenia [Recovering/Resolving]

NARRATIVE: CASE EVENT DATE: 20141009
